FAERS Safety Report 7005670-X (Version None)
Quarter: 2010Q3

REPORT INFORMATION
  Report Type: 
  Country: None (occurrence: None)
  Receive Date: 20100921
  Receipt Date: 20100910
  Transmission Date: 20110219
  Serious: Yes (Hospitalization)
  Sender: FDA-Public Use
  Company Number: B0674336A

PATIENT
  Age: 67 Year
  Sex: Female

DRUGS (10)
  1. ZOFRAN [Suspect]
     Route: 042
  2. STALEVO 100 [Concomitant]
     Indication: PARKINSON'S DISEASE
  3. REQUIP [Concomitant]
     Indication: PARKINSON'S DISEASE
  4. APIDRA [Concomitant]
  5. LANTUS [Concomitant]
  6. ORACILLIN [Concomitant]
     Indication: PROPHYLAXIS
  7. FLUOROURACIL [Concomitant]
  8. IRINOTECAN HCL [Concomitant]
  9. OXALIPLATIN [Concomitant]
  10. EMEND [Concomitant]

REACTIONS (3)
  - HEADACHE [None]
  - PARKINSON'S DISEASE [None]
  - VOMITING [None]
